FAERS Safety Report 9104206 (Version 1)
Quarter: 2013Q1

REPORT INFORMATION
  Report Type: Spontaneous
  Country: US (occurrence: US)
  Receive Date: 20130219
  Receipt Date: 20130219
  Transmission Date: 20140127
  Serious: Yes (Other)
  Sender: FDA-Public Use
  Company Number: PHEH2012US024037

PATIENT
  Sex: Male

DRUGS (4)
  1. RITALIN LA [Suspect]
     Dosage: 20 MG 3XDAY AND 40 MG 1XDAY
  2. ADVAIR [Concomitant]
  3. PRO-AIR [Concomitant]
  4. LORATADINE [Concomitant]

REACTIONS (3)
  - Abnormal behaviour [Unknown]
  - Wheezing [Unknown]
  - Asthma [Unknown]
